FAERS Safety Report 5398352-1 (Version None)
Quarter: 2007Q3

REPORT INFORMATION
  Report Type: 
  Country: None (occurrence: None)
  Receive Date: 20070726
  Receipt Date: 20070314
  Transmission Date: 20080115
  Serious: Yes (Hospitalization, Disabling)
  Sender: FDA-Public Use
  Company Number: US-AMGEN-US215320

PATIENT
  Sex: Female
  Weight: 60.4 kg

DRUGS (8)
  1. PROCRIT [Suspect]
     Indication: ANAEMIA OF MALIGNANT DISEASE
     Route: 065
     Dates: start: 20050301
  2. ELMIRON [Concomitant]
     Route: 065
     Dates: start: 20050101
  3. BACTRIM [Concomitant]
     Route: 065
     Dates: start: 20050101
  4. ACYCLOVIR [Concomitant]
     Route: 065
     Dates: start: 20050101
  5. XANAX [Concomitant]
     Route: 065
  6. BIAXIN [Concomitant]
     Route: 065
  7. MEGACE [Concomitant]
     Route: 065
  8. MS CONTIN [Concomitant]
     Route: 065

REACTIONS (1)
  - CEREBROVASCULAR ACCIDENT [None]
